FAERS Safety Report 7555720-7 (Version None)
Quarter: 2011Q2

REPORT INFORMATION
  Report Type: 
  Country: None (occurrence: None)
  Receive Date: 20110617
  Receipt Date: 20110608
  Transmission Date: 20111010
  Serious: Yes (Hospitalization, Disabling, Other)
  Sender: FDA-Public Use
  Company Number: US-MERCK-0511USA00806

PATIENT
  Age: 46 Year
  Sex: Male
  Weight: 73 kg

DRUGS (11)
  1. FOSAMAX [Suspect]
     Route: 048
     Dates: start: 20020101, end: 20030201
  2. CLONOPIN [Concomitant]
     Route: 065
  3. OXYCONTIN [Concomitant]
     Route: 065
  4. FOSAMAX [Suspect]
     Route: 048
     Dates: start: 19980101, end: 20010101
  5. FOSAMAX [Suspect]
     Route: 048
     Dates: start: 20040601, end: 20060101
  6. VIOXX [Suspect]
     Route: 048
     Dates: start: 20000401, end: 20040930
  7. VIOXX [Suspect]
     Indication: ANKYLOSING SPONDYLITIS
     Route: 048
     Dates: start: 20000401, end: 20040930
  8. PROTONIX [Concomitant]
     Route: 065
  9. PREDNISONE [Concomitant]
     Route: 065
  10. VIOXX [Suspect]
     Indication: ARTHRITIS
     Route: 048
     Dates: start: 20000401, end: 20040930
  11. VIOXX [Suspect]
     Route: 048
     Dates: start: 20000401, end: 20040930

REACTIONS (16)
  - BONE FORMATION DECREASED [None]
  - DEVICE MALFUNCTION [None]
  - ARTHROPATHY [None]
  - ADVERSE DRUG REACTION [None]
  - WRIST FRACTURE [None]
  - COMPRESSION FRACTURE [None]
  - LUMBAR VERTEBRAL FRACTURE [None]
  - GASTROINTESTINAL DISORDER [None]
  - DEPRESSION [None]
  - IMPAIRED HEALING [None]
  - OSTEOMYELITIS [None]
  - ARTHRITIS [None]
  - INFECTION [None]
  - FEMUR FRACTURE [None]
  - PAIN [None]
  - SEPSIS [None]
